FAERS Safety Report 11569996 (Version 1)
Quarter: 2015Q3

REPORT INFORMATION
  Report Type: Spontaneous
  Country: US (occurrence: US)
  Receive Date: 20150929
  Receipt Date: 20150929
  Transmission Date: 20151125
  Serious: No
  Sender: FDA-Public Use
  Company Number: US-PFIZER INC-2014287067

PATIENT
  Age: 57 Year
  Sex: Female
  Weight: 49.43 kg

DRUGS (14)
  1. LYRICA [Suspect]
     Active Substance: PREGABALIN
     Dosage: 150MG(ONE CAPSULE IN THE MORNING AND ONE CAPSULE AT NIGHT)
     Route: 048
  2. LYRICA [Suspect]
     Active Substance: PREGABALIN
     Dosage: 75 MG, 2X/DAY
     Route: 048
  3. PREMPRO [Concomitant]
     Active Substance: ESTROGENS, CONJUGATED\MEDROXYPROGESTERONE ACETATE
     Indication: NIGHT SWEATS
     Dosage: UNK (0.625/ 25) ONCE A NIGHT
     Route: 048
  4. LYRICA [Suspect]
     Active Substance: PREGABALIN
     Dosage: UNK
  5. VITAMIN D3 [Concomitant]
     Active Substance: CHOLECALCIFEROL
     Dosage: UNK UNK, 1X/DAY (CHEW 1 TABLET BY ORAL ROUTE DAILY)
     Route: 048
     Dates: start: 20110201
  6. LYRICA [Suspect]
     Active Substance: PREGABALIN
     Indication: FIBROMYALGIA
     Dosage: 75 MG, 2X/DAY
     Route: 048
     Dates: start: 2005
  7. CYMBALTA [Concomitant]
     Active Substance: DULOXETINE HYDROCHLORIDE
     Dosage: 60 MG, 1X/DAY
     Route: 048
     Dates: start: 20150303
  8. OMEGA SMART BITES [Concomitant]
     Dosage: UNK UNK, 1X/DAY (1110 IU OMEGA 3; 1000 IU VIT D)
     Route: 048
  9. LOVASTATIN. [Concomitant]
     Active Substance: LOVASTATIN
     Dosage: 40 MG, 1X/DAY (WITH THE EVENING MEAL)
     Route: 048
  10. INDOMETHACIN. [Concomitant]
     Active Substance: INDOMETHACIN
     Dosage: 50 MG, 3X/DAY (TAKE 1 CAPSULE (50 MG) BY ORAL ROUTE 3 TIMES PER DAY WITH FOOD)
     Route: 048
     Dates: start: 20141009
  11. CALCIUM [Concomitant]
     Active Substance: CALCIUM
     Dosage: 2 DF, DAILY (500 ORAL/ 1,250MG)
     Route: 048
  12. GINKGO BILOBA [Concomitant]
     Active Substance: GINKGO
     Dosage: 120 MG, DAILY
     Route: 048
  13. LYRICA [Suspect]
     Active Substance: PREGABALIN
     Dosage: 300 MG, 2X/DAY
     Route: 048
     Dates: start: 20150303
  14. ADVAIR DISKUS INHALATION [Concomitant]
     Dosage: 250-50MCG, 2X/DAY (INHALE 1 PUFF BY INHALATION ROUTE 2 TIMES PER DAY MORNING AND EVENING)
     Dates: start: 20090618

REACTIONS (2)
  - Fibromyalgia [Recovered/Resolved]
  - Condition aggravated [Recovered/Resolved]
